FAERS Safety Report 17144068 (Version 4)
Quarter: 2020Q3

REPORT INFORMATION
  Report Type: Report from Study
  Country: US (occurrence: US)
  Receive Date: 20191212
  Receipt Date: 20200727
  Transmission Date: 20201102
  Serious: Yes (Hospitalization, Other)
  Sender: FDA-Public Use
  Company Number: NVSC2019US067108

PATIENT
  Sex: Female

DRUGS (1)
  1. GILENYA [Suspect]
     Active Substance: FINGOLIMOD HYDROCHLORIDE
     Indication: MULTIPLE SCLEROSIS
     Dosage: 0.5 MG, QD
     Route: 048
     Dates: start: 20191109

REACTIONS (6)
  - Multiple sclerosis relapse [Unknown]
  - Gait inability [Unknown]
  - Urinary tract infection [Unknown]
  - Paraesthesia [Unknown]
  - Frustration tolerance decreased [Unknown]
  - Nervousness [Unknown]
